FAERS Safety Report 11115703 (Version 6)
Quarter: 2016Q1

REPORT INFORMATION
  Report Type: Report from Study
  Country: UY (occurrence: UY)
  Receive Date: 20150515
  Receipt Date: 20160128
  Transmission Date: 20160525
  Serious: Yes (Death, Hospitalization, Other)
  Sender: FDA-Public Use
  Company Number: UY-ROCHE-1549157

PATIENT
  Age: 65 Year
  Sex: Female

DRUGS (4)
  1. XELODA [Suspect]
     Active Substance: CAPECITABINE
     Indication: COLON CANCER METASTATIC
     Dosage: DAILY
     Route: 048
     Dates: start: 20141017, end: 20150511
  2. MORPHINE [Concomitant]
     Active Substance: MORPHINE
     Indication: PAIN
     Route: 065
  3. AVASTIN [Suspect]
     Active Substance: BEVACIZUMAB
     Indication: COLON CANCER METASTATIC
     Route: 065
  4. OXALIPLATIN. [Concomitant]
     Active Substance: OXALIPLATIN
     Indication: COLON CANCER METASTATIC

REACTIONS (12)
  - Anxiety [Unknown]
  - Pneumonia [Unknown]
  - Proctalgia [Unknown]
  - Asthenia [Unknown]
  - Diarrhoea [Unknown]
  - Death [Fatal]
  - Immunodeficiency [Unknown]
  - Syncope [Unknown]
  - Contusion [Unknown]
  - Venous thrombosis limb [Unknown]
  - Tumour marker increased [Unknown]
  - Hypoaesthesia [Unknown]

NARRATIVE: CASE EVENT DATE: 2015
